FAERS Safety Report 8776188 (Version 1)
Quarter: 2012Q4

REPORT INFORMATION
  Report Type: 
  Country: NL (occurrence: NL)
  Receive Date: 20120910
  Receipt Date: 20120910
  Transmission Date: 20130627
  Serious: Yes (Other)
  Sender: FDA-Public Use
  Company Number: NL-MYLANLABS-2012S1018052

PATIENT
  Age: 61 Year
  Sex: Female

DRUGS (4)
  1. MELOXICAM [Suspect]
     Indication: RHEUMATOID ARTHRITIS
     Dosage: 1 dd 7.5 mg
     Route: 048
     Dates: start: 2008, end: 20120702
  2. ENBREL [Suspect]
     Indication: RHEUMATOID ARTHRITIS
     Dosage: 50 mg per 2 weken
     Route: 058
     Dates: start: 20090818, end: 2012
  3. OMEPRAZOLE [Concomitant]
     Indication: PRODUCT USED FOR UNKNOWN INDICATION
     Dosage: 1 dd 20 mg
     Route: 048
     Dates: start: 2008, end: 20120709
  4. CALCI CHEW [Concomitant]
     Indication: PRODUCT USED FOR UNKNOWN INDICATION
     Dosage: 1 dd 1000 mg
     Route: 048
     Dates: start: 2008

REACTIONS (1)
  - Glomerulonephritis [Not Recovered/Not Resolved]
